FAERS Safety Report 11998968 (Version 1)
Quarter: 2016Q1

REPORT INFORMATION
  Report Type: Spontaneous
  Country: US (occurrence: None)
  Receive Date: 20160203
  Receipt Date: 20160203
  Transmission Date: 20160526
  Serious: No
  Sender: FDA-Public Use
  Company Number: None

PATIENT
  Age: 69 Year
  Sex: Female
  Weight: 68.04 kg

DRUGS (4)
  1. ASA [Concomitant]
     Active Substance: ASPIRIN
  2. MVI [Concomitant]
     Active Substance: VITAMINS
  3. METOPROLOL SUCC ER [Concomitant]
     Active Substance: METOPROLOL SUCCINATE
  4. METHOCARBAMOL QUALITEST [Suspect]
     Active Substance: METHOCARBAMOL
     Indication: MUSCLE RELAXANT THERAPY
     Dosage: 500MG 1 PILL 3X DAILY MOUTH
     Dates: start: 20151220, end: 20160108

REACTIONS (3)
  - Chest discomfort [None]
  - Retinal haemorrhage [None]
  - Scleral thinning [None]

NARRATIVE: CASE EVENT DATE: 20160108
